FAERS Safety Report 15020598 (Version 1)
Quarter: 2018Q2

REPORT INFORMATION
  Report Type: Spontaneous
  Country: US (occurrence: US)
  Receive Date: 20180618
  Receipt Date: 20180618
  Transmission Date: 20180711
  Serious: No
  Sender: FDA-Public Use
  Company Number: US-MALLINCKRODT-T201800249

PATIENT
  Age: 61 Year
  Sex: Female

DRUGS (3)
  1. HYDROCODONE/ACETAMINOPHEN [Suspect]
     Active Substance: ACETAMINOPHEN\HYDROCODONE
     Indication: PAIN
     Dosage: 10/325 MG
     Route: 048
  2. BENADRYL [Suspect]
     Active Substance: DIPHENHYDRAMINE HYDROCHLORIDE
     Indication: PRURITUS
     Dosage: UNK
     Route: 065
  3. METHYLPREDNISOLONE. [Suspect]
     Active Substance: METHYLPREDNISOLONE
     Indication: PRURITUS
     Dosage: UNK
     Route: 065

REACTIONS (9)
  - Hypersensitivity [Unknown]
  - Swelling [Unknown]
  - Condition aggravated [Unknown]
  - Pruritus generalised [Unknown]
  - Insomnia [Unknown]
  - Tearfulness [Unknown]
  - Dyspnoea [Unknown]
  - Nasal dryness [Unknown]
  - Somnolence [Unknown]
